FAERS Safety Report 8326372-3 (Version None)
Quarter: 2012Q2

REPORT INFORMATION
  Report Type: 
  Country: None (occurrence: None)
  Receive Date: 20120501
  Receipt Date: 20120425
  Transmission Date: 20120825
  Serious: Yes (Hospitalization)
  Sender: FDA-Public Use
  Company Number: JP-VERTEX PHARMACEUTICALS INC.-AE-2012-003435

PATIENT
  Age: 64 Year
  Sex: Male

DRUGS (8)
  1. TELAVIC (TELAPREVIR) [Suspect]
     Indication: HEPATITIS C
     Route: 048
     Dates: start: 20120120, end: 20120216
  2. TELAVIC (TELAPREVIR) [Suspect]
     Route: 048
     Dates: start: 20120217, end: 20120413
  3. RIBAVIRIN [Concomitant]
     Indication: HEPATITIS C
     Route: 048
     Dates: start: 20120120, end: 20120126
  4. PEGINTERFERON ALFA-2B [Concomitant]
     Route: 051
  5. LOXOPROFEN [Concomitant]
     Route: 048
     Dates: start: 20120120
  6. PEGINTERFERON ALFA-2B [Concomitant]
     Indication: HEPATITIS C
     Route: 051
     Dates: start: 20120120
  7. RIBAVIRIN [Concomitant]
     Route: 048
     Dates: start: 20120127, end: 20120224
  8. RIBAVIRIN [Concomitant]
     Route: 048
     Dates: start: 20120225

REACTIONS (9)
  - PAPULE [None]
  - HYPERURICAEMIA [None]
  - MALAISE [None]
  - INSOMNIA [None]
  - DECREASED APPETITE [None]
  - PYREXIA [None]
  - WHITE BLOOD CELL COUNT DECREASED [None]
  - PLATELET COUNT DECREASED [None]
  - HAEMOGLOBIN DECREASED [None]
